FAERS Safety Report 14067985 (Version 1)
Quarter: 2017Q4

REPORT INFORMATION
  Report Type: Spontaneous
  Country: LY (occurrence: LY)
  Receive Date: 20171010
  Receipt Date: 20171010
  Transmission Date: 20180321
  Serious: Yes (Death, Hospitalization)
  Sender: FDA-Public Use
  Company Number: LY-ORPHAN EUROPE-2029388

PATIENT
  Age: 5 Year
  Sex: Male
  Weight: 21 kg

DRUGS (2)
  1. CARBAGLU [Suspect]
     Active Substance: CARGLUMIC ACID
     Indication: HYPERAMMONAEMIA
     Dates: start: 2015
  2. CARBAGLU [Suspect]
     Active Substance: CARGLUMIC ACID

REACTIONS (5)
  - Dehydration [Fatal]
  - Diarrhoea [Fatal]
  - Protein urine present [Fatal]
  - Ammonia increased [Fatal]
  - Rash [Fatal]

NARRATIVE: CASE EVENT DATE: 20170930
